FAERS Safety Report 4505461-5 (Version None)
Quarter: 2004Q4

REPORT INFORMATION
  Report Type: 
  Country: None (occurrence: None)
  Receive Date: 20041118
  Receipt Date: 20041101
  Transmission Date: 20050328
  Serious: Yes (Other)
  Sender: FDA-Public Use
  Company Number: CAO04000688

PATIENT
  Age: 71 Year
  Sex: Female

DRUGS (5)
  1. PEPTO-BISMOL, ORIGINAL FLAVOR (BISMUTH SUBSALICYLATE 262 MG, CALCIUM C [Suspect]
     Dosage: 2 TABLET, UNK FREQ FOR 2 DAYS, ORAL
     Route: 048
     Dates: start: 20040409, end: 20040411
  2. DILANTIN [Concomitant]
  3. CARDIAC THERAPY [Concomitant]
  4. ATACAND [Concomitant]
  5. RENEDIL (FELODIPINE) [Concomitant]

REACTIONS (6)
  - ABDOMINAL PAIN [None]
  - CIRCULATORY COLLAPSE [None]
  - DEHYDRATION [None]
  - DIARRHOEA [None]
  - FAECES DISCOLOURED [None]
  - TONGUE BLACK HAIRY [None]
